FAERS Safety Report 11038389 (Version 1)
Quarter: 2015Q2

REPORT INFORMATION
  Report Type: Spontaneous
  Country: US (occurrence: None)
  Receive Date: 20150415
  Receipt Date: 20150415
  Transmission Date: 20150821
  Serious: Yes (Other)
  Sender: FDA-Public Use
  Company Number: None

PATIENT
  Age: 21 Year
  Sex: Female
  Weight: 100.5 kg

DRUGS (2)
  1. HUMULIN N [Suspect]
     Active Substance: INSULIN HUMAN
     Indication: TYPE 2 DIABETES MELLITUS
     Dosage: 50-56 UNITS, SQ, BID?
     Route: 058
     Dates: start: 201412
  2. HUMULIN N [Suspect]
     Active Substance: INSULIN HUMAN
     Indication: PREGNANCY
     Dosage: 50-56 UNITS, SQ, BID?
     Route: 058
     Dates: start: 201412

REACTIONS (2)
  - Rash [None]
  - Injection site swelling [None]

NARRATIVE: CASE EVENT DATE: 20150320
